FAERS Safety Report 20106509 (Version 1)
Quarter: 2021Q4

REPORT INFORMATION
  Report Type: Spontaneous
  Country: TR (occurrence: TR)
  Receive Date: 20211124
  Receipt Date: 20211124
  Transmission Date: 20220303
  Serious: Yes (Hospitalization)
  Sender: FDA-Public Use
  Company Number: TR-ABBVIE-21K-161-4173587-00

PATIENT
  Age: 8 Year
  Sex: Male

DRUGS (2)
  1. HUMIRA [Suspect]
     Active Substance: ADALIMUMAB
     Indication: Chronic recurrent multifocal osteomyelitis
     Route: 058
     Dates: start: 202110, end: 202110
  2. ENBREL [Suspect]
     Active Substance: ETANERCEPT
     Indication: Chronic recurrent multifocal osteomyelitis
     Route: 065
     Dates: start: 202108, end: 202108

REACTIONS (2)
  - Bradypnoea [Recovered/Resolved]
  - Off label use [Recovered/Resolved]

NARRATIVE: CASE EVENT DATE: 20210101
